FAERS Safety Report 7479569-9 (Version None)
Quarter: 2011Q2

REPORT INFORMATION
  Report Type: 
  Country: None (occurrence: None)
  Receive Date: 20110513
  Receipt Date: 20110504
  Transmission Date: 20111010
  Serious: Yes (Other)
  Sender: FDA-Public Use
  Company Number: GB-ALLERGAN-1106250US

PATIENT
  Age: 67 Year
  Sex: Female
  Weight: 104.8 kg

DRUGS (2)
  1. DOXAZOSIN MESYLATE [Concomitant]
     Indication: HYPERTENSION
     Dosage: 4 MG, QD
  2. TROSPIUM CHLORIDE [Suspect]
     Indication: URINARY INCONTINENCE
     Dosage: 40 MG, QD
     Route: 048
     Dates: start: 20110124, end: 20110223

REACTIONS (4)
  - HYPERTENSION [None]
  - HEAD DISCOMFORT [None]
  - HEADACHE [None]
  - HEART RATE INCREASED [None]
